FAERS Safety Report 17151052 (Version 1)
Quarter: 2019Q4

REPORT INFORMATION
  Report Type: Spontaneous
  Country: FR (occurrence: FR)
  Receive Date: 20191213
  Receipt Date: 20191213
  Transmission Date: 20200122
  Serious: Yes (Death)
  Sender: FDA-Public Use
  Company Number: FR-ZYDUS-044453

PATIENT
  Age: 39 Year
  Sex: Female

DRUGS (1)
  1. TRAMADOL. [Suspect]
     Active Substance: TRAMADOL
     Indication: INTENTIONAL PRODUCT MISUSE
     Route: 065
     Dates: end: 2018

REACTIONS (1)
  - Drug abuse [Fatal]
